FAERS Safety Report 5457265-7 (Version None)
Quarter: 2007Q3

REPORT INFORMATION
  Report Type: 
  Country: None (occurrence: None)
  Receive Date: 20070918
  Receipt Date: 20070702
  Transmission Date: 20080115
  Serious: No
  Sender: FDA-Public Use
  Company Number: US-ASTRAZENECA-2007UW01937

PATIENT
  Age: 17647 Day
  Sex: Female
  Weight: 89.5 kg

DRUGS (14)
  1. SEROQUEL [Suspect]
     Indication: SLEEP DISORDER
     Route: 048
     Dates: start: 20040802
  2. HALDOL [Concomitant]
     Dates: start: 20020509
  3. WELLBUTRIN [Concomitant]
  4. PAXIL [Concomitant]
  5. EFFEXOR [Concomitant]
  6. METHYLPHENIDATE HCL [Concomitant]
  7. DIAZEPAM [Concomitant]
  8. TEMAZEPAM [Concomitant]
  9. PROVIGIL [Concomitant]
  10. VALTREX [Concomitant]
  11. AMBIEN [Concomitant]
  12. FLUCONAZOLE [Concomitant]
  13. FLUOXETINE [Concomitant]
  14. MAXALT [Concomitant]

REACTIONS (9)
  - BACK PAIN [None]
  - BLOOD CHOLESTEROL INCREASED [None]
  - BLOOD TRIGLYCERIDES INCREASED [None]
  - BUNDLE BRANCH BLOCK RIGHT [None]
  - CERUMEN IMPACTION [None]
  - CHEST PAIN [None]
  - DIZZINESS [None]
  - FATIGUE [None]
  - TYPE 2 DIABETES MELLITUS [None]
